FAERS Safety Report 4905201-1 (Version None)
Quarter: 2006Q1

REPORT INFORMATION
  Report Type: 
  Country: None (occurrence: None)
  Receive Date: 20060208
  Receipt Date: 20051128
  Transmission Date: 20060701
  Serious: No
  Sender: FDA-Public Use
  Company Number: US-GLAXOSMITHKLINE-A0583685A

PATIENT
  Age: 53 Year
  Sex: Male

DRUGS (6)
  1. PAROXETINE HCL [Suspect]
     Dosage: 60MG PER DAY
     Route: 048
  2. LITHOBID [Concomitant]
  3. LISINOPRIL [Concomitant]
  4. NORVASC [Concomitant]
  5. ACIPHEX [Concomitant]
  6. HYOSCYAMINE [Concomitant]

REACTIONS (7)
  - ABDOMINAL DISCOMFORT [None]
  - CONFUSIONAL STATE [None]
  - DEHYDRATION [None]
  - DISCOMFORT [None]
  - DISORIENTATION [None]
  - DRUG INEFFECTIVE [None]
  - LETHARGY [None]
